FAERS Safety Report 5364358-1 (Version None)
Quarter: 2007Q2

REPORT INFORMATION
  Report Type: 
  Country: None (occurrence: None)
  Receive Date: 20070618
  Receipt Date: 20070601
  Transmission Date: 20071010
  Serious: Yes (Hospitalization, Disabling)
  Sender: FDA-Public Use
  Company Number: 8017561

PATIENT
  Sex: Female
  Weight: 58.6 kg

DRUGS (11)
  1. KEPPRA [Suspect]
     Indication: EPILEPSY
     Dosage: 2500 MG /D PO
     Route: 048
     Dates: end: 20060611
  2. KEPPRA [Suspect]
     Indication: EPILEPSY
     Dosage: 1500 MG 2/D PO
     Route: 048
     Dates: start: 20060612, end: 20060619
  3. KEPPRA [Suspect]
     Indication: EPILEPSY
     Dosage: 2750 MG /D PO
     Route: 048
     Dates: start: 20060620
  4. KEPPRA [Suspect]
     Indication: EPILEPSY
     Dosage: 1000 MG 2/D PO
     Route: 048
     Dates: start: 20060101
  5. CODICAPS [Suspect]
     Indication: VIRAL INFECTION
     Dosage: 1 DF 2/D PO
     Route: 048
     Dates: start: 20070227, end: 20070301
  6. ERGENYL CHRONO [Concomitant]
  7. VALPROATE CHRONO [Concomitant]
  8. TOPIRAMATE [Concomitant]
  9. DOCITON [Concomitant]
  10. ENALAPRIL [Concomitant]
  11. HUMININSULIN NORMAL [Concomitant]

REACTIONS (6)
  - ABDOMINAL PAIN UPPER [None]
  - BLOOD GLUCOSE FLUCTUATION [None]
  - GRAND MAL CONVULSION [None]
  - HALLUCINATION, VISUAL [None]
  - VIRAL INFECTION [None]
  - VISUAL DISTURBANCE [None]
